FAERS Safety Report 11661072 (Version 2)
Quarter: 2015Q4

REPORT INFORMATION
  Report Type: Report from Study
  Country: GB (occurrence: GB)
  Receive Date: 20151026
  Receipt Date: 20151111
  Transmission Date: 20160304
  Serious: Yes (Hospitalization, Congenital Anomaly)
  Sender: FDA-Public Use
  Company Number: PHHO2015GB016806

PATIENT
  Age: 66 Year
  Sex: Female

DRUGS (3)
  1. FOSBRETABULIN [Suspect]
     Active Substance: FOSBRETABULIN
     Indication: OVARIAN CANCER
     Dosage: 110 MG, UNK
     Route: 042
     Dates: start: 20150928
  2. PAZOPANIB [Suspect]
     Active Substance: PAZOPANIB
     Indication: OVARIAN CANCER
     Dosage: 600 MG, UNK
     Route: 048
     Dates: start: 20151002, end: 20151027
  3. LEVOTHYROXINE. [Concomitant]
     Active Substance: LEVOTHYROXINE
     Indication: THYROIDECTOMY
     Dosage: 125 UG, QD
     Route: 065
     Dates: start: 1985

REACTIONS (2)
  - Hepatotoxicity [Not Recovered/Not Resolved]
  - Pyrexia [Not Recovered/Not Resolved]

NARRATIVE: CASE EVENT DATE: 20151002
